FAERS Safety Report 17729958 (Version 1)
Quarter: 2020Q2

REPORT INFORMATION
  Report Type: Report from Study
  Country: GB (occurrence: GB)
  Receive Date: 20200430
  Receipt Date: 20200430
  Transmission Date: 20200714
  Serious: Yes (Other)
  Sender: FDA-Public Use
  Company Number: NVSC2020GB116883

PATIENT
  Sex: Female

DRUGS (2)
  1. HYRIMOZ [Suspect]
     Active Substance: ADALIMUMAB-ADAZ
     Dosage: 40 MG, Q2W (80 MG)
     Route: 058
     Dates: start: 20200226
  2. HYRIMOZ [Suspect]
     Active Substance: ADALIMUMAB-ADAZ
     Indication: CROHN^S DISEASE
     Dosage: 40 MG, Q2W (160 MG)
     Route: 058
     Dates: start: 20200207

REACTIONS (6)
  - Cough [Unknown]
  - Psychiatric symptom [Unknown]
  - Pain [Unknown]
  - Dyspnoea [Unknown]
  - Bronchitis [Unknown]
  - Coronavirus infection [Unknown]
